FAERS Safety Report 9285339 (Version 1)
Quarter: 2013Q2

REPORT INFORMATION
  Report Type: Spontaneous
  Country: US (occurrence: None)
  Receive Date: 20130506
  Receipt Date: 20130506
  Transmission Date: 20140414
  Serious: Yes (Disabling)
  Sender: FDA-Public Use
  Company Number: FK201301361

PATIENT
  Age: 63 Year
  Sex: Female

DRUGS (5)
  1. PROPOFOL [Suspect]
     Indication: GENERAL ANAESTHESIA
     Dosage: 1 IN 1 D
     Route: 042
     Dates: start: 20100114, end: 20100114
  2. FENTANYL [Suspect]
     Indication: GENERAL ANAESTHESIA
     Dosage: 1 IN 1 D
     Route: 042
     Dates: start: 20100114, end: 20100114
  3. NAROPIN [Suspect]
     Indication: NERVE BLOCK
     Dosage: 1 IN 1 D
     Route: 042
     Dates: start: 20100114, end: 20100114
  4. LIDOCAINE (MANUFACTURER UNKNOWN) (LIDOCAINE) (LIDOCAINE) [Suspect]
     Indication: NERVE BLOCK
     Dosage: 5ML OF 2% SOLUTION
     Route: 042
     Dates: start: 20100114, end: 20100114
  5. METAOXEDRIN [Concomitant]

REACTIONS (10)
  - Headache [None]
  - Memory impairment [None]
  - Salivary hypersecretion [None]
  - Speech disorder [None]
  - Hypoaesthesia [None]
  - Dyspnoea [None]
  - Choking sensation [None]
  - Tendon injury [None]
  - Tongue paralysis [None]
  - Head lag abnormal [None]
